FAERS Safety Report 6495802-4 (Version None)
Quarter: 2009Q4

REPORT INFORMATION
  Report Type: 
  Country: None (occurrence: None)
  Receive Date: 20091214
  Receipt Date: 20090813
  Transmission Date: 20100525
  Serious: No
  Sender: FDA-Public Use
  Company Number: US-BRISTOL-MYERS SQUIBB COMPANY-14740690

PATIENT
  Age: 62 Year
  Sex: Female
  Weight: 116 kg

DRUGS (9)
  1. ABILIFY [Suspect]
     Indication: MOOD SWINGS
  2. ZYPREXA [Concomitant]
  3. METFORMIN [Concomitant]
  4. PROZAC [Concomitant]
  5. GEMFIBROZIL [Concomitant]
  6. ACTOS [Concomitant]
  7. LEVOTHYROXINE SODIUM [Concomitant]
  8. ADVAIR DISKUS 100/50 [Concomitant]
  9. COLESTIPOL HYDROCHLORIDE [Concomitant]

REACTIONS (1)
  - ANXIETY [None]
